FAERS Safety Report 4891809-9 (Version None)
Quarter: 2006Q1

REPORT INFORMATION
  Report Type: 
  Country: None (occurrence: None)
  Receive Date: 20060123
  Receipt Date: 20060110
  Transmission Date: 20060701
  Serious: Yes (Death)
  Sender: FDA-Public Use
  Company Number: JP200512001925

PATIENT
  Age: 52 Year
  Sex: Female
  Weight: 56 kg

DRUGS (13)
  1. ZYPREXA [Suspect]
     Indication: SCHIZOPHRENIA
     Dosage: SEE IMAGE
     Route: 048
     Dates: start: 20050719, end: 20050721
  2. ZYPREXA [Suspect]
     Indication: SCHIZOPHRENIA
     Dosage: SEE IMAGE
     Route: 048
     Dates: start: 20050722, end: 20050805
  3. ZYPREXA [Suspect]
     Indication: SCHIZOPHRENIA
     Dosage: SEE IMAGE
     Route: 048
     Dates: start: 20050806, end: 20050826
  4. ZYPREXA [Suspect]
     Indication: SCHIZOPHRENIA
     Dosage: SEE IMAGE
     Route: 048
     Dates: start: 20050827, end: 20051121
  5. RISPERDAL /SWE/RISPERIDONE) [Concomitant]
  6. LULLAN /JPN/ (PEROSPIRONE HYDROCHLORIDE) [Concomitant]
  7. LORAZEPAM [Concomitant]
  8. ROIPNOL (FLUNITRAZEPAM) [Concomitant]
  9. PURSENNIDE (SENNA LEAF) [Concomitant]
  10. HALOPERIDOL [Concomitant]
  11. EBRANTIL (URAPIDIL) [Concomitant]
  12. ALOSENN (ACHILLEA, RUBIA ROOT TINCTURE, SENNA FRUIT, SENNA LEAF, TARAX [Concomitant]
  13. LEVOTOMIN (LEVOMEPROMAZINE MALEATE) [Concomitant]

REACTIONS (7)
  - ACUTE MYOCARDIAL INFARCTION [None]
  - HYPERGLYCAEMIA [None]
  - INCREASED APPETITE [None]
  - POLYDIPSIA [None]
  - POLYURIA [None]
  - WATER INTOXICATION [None]
  - WEIGHT INCREASED [None]
